FAERS Safety Report 9563687 (Version 1)
Quarter: 2013Q1

REPORT INFORMATION
  Report Type: Spontaneous
  Country: US (occurrence: None)
  Receive Date: 20121227
  Receipt Date: 20121227
  Transmission Date: 20140127
  Serious: Yes (Hospitalization)
  Sender: FDA-Public Use
  Company Number: PHEH2012US012075

PATIENT
  Age: 16 Year
  Sex: Female
  Weight: 102 kg

DRUGS (7)
  1. EXJADE [Suspect]
     Indication: IRON OVERLOAD
     Route: 048
     Dates: start: 201204
  2. NORVASC (AMLODIPINE BESILATE) [Concomitant]
  3. ZANTAC (RANITIDINE HYDROCHLORIDE0 [Concomitant]
  4. NORTRIPTYLINE (NORTRIPTYLINE) [Concomitant]
  5. FOLIC ACID (FOLIC ACID) [Concomitant]
  6. OXYCODONE (OXYCODONE) [Concomitant]
  7. TYLENOL WITH CODEINE (CODEINE PHOSPHATE, PARACETAMOL) [Concomitant]

REACTIONS (4)
  - Sickle cell anaemia with crisis [None]
  - Pain [None]
  - Fatigue [None]
  - Dizziness [None]
